FAERS Safety Report 9296322 (Version 2)
Quarter: 2015Q1

REPORT INFORMATION
  Report Type: Spontaneous
  Country: HU (occurrence: HU)
  Receive Date: 20130517
  Receipt Date: 20150107
  Transmission Date: 20150721
  Serious: Yes (Hospitalization, Other)
  Sender: FDA-Public Use
  Company Number: PHHY2013HU047200

PATIENT
  Age: 63 Year
  Sex: Female

DRUGS (1)
  1. METHYLPREDNISOLONE. [Suspect]
     Active Substance: METHYLPREDNISOLONE
     Indication: SARCOIDOSIS
     Route: 062

REACTIONS (9)
  - Proteinuria [Recovered/Resolved]
  - Malacoplakia vesicae [Recovered/Resolved]
  - Vesicocutaneous fistula [Recovered/Resolved]
  - Inflammation [Recovered/Resolved]
  - Escherichia infection [Recovered/Resolved]
  - Haematuria [Recovered/Resolved]
  - Abscess [Recovered/Resolved]
  - Pyrexia [Recovered/Resolved]
  - Leukocytosis [Recovered/Resolved]
